FAERS Safety Report 6588981-1 (Version None)
Quarter: 2010Q1

REPORT INFORMATION
  Report Type: 
  Country: None (occurrence: None)
  Receive Date: 20100218
  Receipt Date: 20100209
  Transmission Date: 20100710
  Serious: Yes (Life-Threatening, Hospitalization)
  Sender: FDA-Public Use
  Company Number: DE-PFIZER INC-2010017059

PATIENT
  Age: 69 Year
  Sex: Male

DRUGS (12)
  1. CEFPODOXIME PROXETIL [Suspect]
     Indication: RESPIRATORY TRACT INFECTION
     Route: 065
  2. DEXAMETHASONE [Suspect]
     Indication: MULTIPLE MYELOMA
     Dosage: 4 MG, UNK
     Route: 048
     Dates: start: 20091219, end: 20091220
  3. KEIMAX [Suspect]
     Indication: RESPIRATORY TRACT INFECTION
     Dosage: 400 MG, UNK
     Route: 048
     Dates: start: 20091106, end: 20091115
  4. LENALIDOMIDE [Suspect]
     Indication: MULTIPLE MYELOMA
     Dosage: 25 MG, DAILY
     Route: 065
     Dates: start: 20090718, end: 20091222
  5. TAMSULOSIN [Concomitant]
  6. ACETYLSALICYLIC ACID [Concomitant]
  7. RED BLOOD CELLS, CONCENTRATED [Concomitant]
  8. FORADIL [Concomitant]
  9. ESOMEPRAZOLE [Concomitant]
  10. SIMVASTATIN [Concomitant]
  11. VITAMIN B-COMPLEX WITH VITAMIN C [Concomitant]
  12. ZINC SULFATE [Concomitant]

REACTIONS (5)
  - COLITIS [None]
  - DEHYDRATION [None]
  - DIARRHOEA [None]
  - GENERAL PHYSICAL HEALTH DETERIORATION [None]
  - RESPIRATORY TRACT INFECTION [None]
